FAERS Safety Report 6547748-0 (Version None)
Quarter: 2010Q1

REPORT INFORMATION
  Report Type: 
  Country: None (occurrence: None)
  Receive Date: 20100124
  Receipt Date: 20091006
  Transmission Date: 20100710
  Serious: No
  Sender: FDA-Public Use
  Company Number: GB-ALEXION-A200900818

PATIENT

DRUGS (6)
  1. SOLIRIS [Suspect]
     Indication: PAROXYSMAL NOCTURNAL HAEMOGLOBINURIA
     Dosage: 900 MG, UNK
     Route: 042
     Dates: start: 20090701
  2. PERINDOPRIL [Concomitant]
  3. FOLIC ACID [Concomitant]
  4. THIAMINE [Concomitant]
  5. VITAMIN B                          /90046501/ [Concomitant]
  6. DALTEPARIN [Concomitant]

REACTIONS (1)
  - DRY THROAT [None]
